FAERS Safety Report 7497774-2 (Version None)
Quarter: 2011Q2

REPORT INFORMATION
  Report Type: 
  Country: None (occurrence: None)
  Receive Date: 20110524
  Receipt Date: 20110512
  Transmission Date: 20111010
  Serious: Yes (Other)
  Sender: FDA-Public Use
  Company Number: GB-BRISTOL-MYERS SQUIBB COMPANY-15747041

PATIENT
  Age: 42 Year
  Sex: Female
  Weight: 82 kg

DRUGS (1)
  1. CETUXIMAB [Suspect]
     Indication: HEAD AND NECK CANCER
     Dosage: INITIAL DOSE:400 MG/M2.MOST RECENT DOSE ON 04MAY11 CETUXIMAB 2MG/ML
     Route: 042
     Dates: start: 20110427

REACTIONS (2)
  - THROMBOSIS [None]
  - LYMPHOEDEMA [None]
